FAERS Safety Report 7820553-0 (Version None)
Quarter: 2011Q4

REPORT INFORMATION
  Report Type: 
  Country: None (occurrence: None)
  Receive Date: 20111018
  Receipt Date: 20111005
  Transmission Date: 20120403
  Serious: Yes (Other)
  Sender: FDA-Public Use
  Company Number: PHHY2011FR89601

PATIENT
  Age: 65 Year
  Sex: Male

DRUGS (2)
  1. IMATINIB MESYLATE [Suspect]
     Dosage: 600 MG, DAILY
  2. IMATINIB MESYLATE [Suspect]
     Indication: CHORDOMA
     Dosage: 400 MG, DAILY
     Route: 048
     Dates: start: 20071001

REACTIONS (7)
  - NEOPLASM MALIGNANT [None]
  - MUSCLE NEOPLASM [None]
  - CHEST PAIN [None]
  - LUNG NEOPLASM [None]
  - NEOPLASM PROGRESSION [None]
  - LYMPHADENOPATHY [None]
  - GENERAL PHYSICAL HEALTH DETERIORATION [None]
